FAERS Safety Report 8142681-5 (Version None)
Quarter: 2012Q1

REPORT INFORMATION
  Report Type: 
  Country: None (occurrence: None)
  Receive Date: 20120216
  Receipt Date: 20120207
  Transmission Date: 20120608
  Serious: Yes (Hospitalization)
  Sender: FDA-Public Use
  Company Number: US-CELGENEUS-163-21880-11122020

PATIENT
  Sex: Male
  Weight: 90 kg

DRUGS (7)
  1. VANCOMYCIN [Concomitant]
     Dosage: 250 MILLIGRAM
     Route: 048
     Dates: start: 20120130
  2. FOLIC ACID [Concomitant]
     Route: 065
  3. DECADRON [Concomitant]
     Route: 065
  4. VITAMIN TAB [Concomitant]
     Route: 065
  5. INSULIN [Concomitant]
     Route: 058
  6. REVLIMID [Suspect]
     Indication: MULTIPLE MYELOMA
     Dosage: 5 MILLIGRAM
     Route: 048
     Dates: start: 20110928, end: 20111201
  7. COUMADIN [Concomitant]
     Route: 065

REACTIONS (3)
  - PNEUMONIA [None]
  - BLOOD CALCIUM INCREASED [None]
  - BLOOD CREATININE INCREASED [None]
